FAERS Safety Report 9539529 (Version 2)
Quarter: 2014Q1

REPORT INFORMATION
  Report Type: Spontaneous
  Country: US (occurrence: None)
  Receive Date: 20130521
  Receipt Date: 20131121
  Transmission Date: 20141002
  Serious: No
  Sender: FDA-Public Use
  Company Number: 1000043946

PATIENT
  Age: 73 Year
  Sex: Male
  Weight: 80.73 kg

DRUGS (3)
  1. TUDORZA PRESSAIR (ACLIDINIUM BROMIDE) (400 MICROGRAM, POWDER) [Suspect]
     Indication: CHRONIC OBSTRUCTIVE PULMONARY DISEASE
     Dosage: 800UG (400 UG,2 IN 1 D), RESPIRATORY
     Route: 055
     Dates: start: 20130319, end: 20130319
  2. ASPIRIN (ACETYLSALICYLIC ACID) [Concomitant]
  3. PLAVIX (CLOPIDOGREL SULFATE) [Concomitant]

REACTIONS (1)
  - Haemoptysis [None]
